APPROVED DRUG PRODUCT: VALPROIC ACID
Active Ingredient: VALPROIC ACID
Strength: 250MG/5ML
Dosage Form/Route: SYRUP;ORAL
Application: A073178 | Product #001 | TE Code: AA
Applicant: ANI PHARMACEUTICALS INC
Approved: Aug 25, 1992 | RLD: No | RS: No | Type: RX